FAERS Safety Report 6822776-6 (Version None)
Quarter: 2010Q3

REPORT INFORMATION
  Report Type: 
  Country: None (occurrence: None)
  Receive Date: 20100708
  Receipt Date: 20100630
  Transmission Date: 20110219
  Serious: Yes (Hospitalization)
  Sender: FDA-Public Use
  Company Number: DE-ROCHE-713256

PATIENT
  Sex: Male
  Weight: 67.8 kg

DRUGS (4)
  1. BEVACIZUMAB [Suspect]
     Dosage: APPLICATION ON 10-, 17- AND 24-JUN-2010
     Route: 065
     Dates: start: 20100610
  2. IRINOTECAN HCL [Suspect]
     Dosage: APPLICATION ON 10-, 17- AND 24-JUN-2010
     Route: 065
     Dates: start: 20100610
  3. ONCOFOLIC [Suspect]
     Dosage: APPLICATION ON 10-, 17- AND 24-JUN-2010
     Route: 065
     Dates: start: 20100610
  4. FLUOROURACIL [Suspect]
     Dosage: APPLICATION ON 10-, 17- AND 24-JUN-2010
     Route: 065
     Dates: start: 20100610

REACTIONS (4)
  - CIRCULATORY COLLAPSE [None]
  - DEHYDRATION [None]
  - DIARRHOEA [None]
  - GENERAL PHYSICAL HEALTH DETERIORATION [None]
